FAERS Safety Report 24121672 (Version 1)
Quarter: 2024Q3

REPORT INFORMATION
  Report Type: Spontaneous
  Country: US (occurrence: None)
  Receive Date: 20240720
  Receipt Date: 20240720
  Transmission Date: 20241017
  Serious: Yes (Disabling)
  Sender: Public
  Company Number: None

PATIENT
  Age: 28 Year
  Sex: Female
  Weight: 42 kg

DRUGS (3)
  1. CIPROFLOXACIN [Suspect]
     Active Substance: CIPROFLOXACIN
     Indication: Kidney infection
     Dosage: OTHER QUANTITY : 1 CAPSULE(S);?FREQUENCY : TWICE A DAY;?
     Route: 048
     Dates: start: 20240329, end: 20240331
  2. VITAMINS [Concomitant]
     Active Substance: VITAMINS
  3. MAGNESIUM L-THREONATE [Concomitant]

REACTIONS (6)
  - Nausea [None]
  - Heart rate increased [None]
  - Pain in extremity [None]
  - Gait disturbance [None]
  - Fatigue [None]
  - Guillain-Barre syndrome [None]

NARRATIVE: CASE EVENT DATE: 20240401
